FAERS Safety Report 6066841-2 (Version None)
Quarter: 2009Q1

REPORT INFORMATION
  Report Type: 
  Country: None (occurrence: None)
  Receive Date: 20090205
  Receipt Date: 20090128
  Transmission Date: 20090719
  Serious: Yes (Disabling, Other)
  Sender: FDA-Public Use
  Company Number: US-JNJFOC-20080702118

PATIENT
  Sex: Male
  Weight: 67.13 kg

DRUGS (5)
  1. LEVAQUIN [Suspect]
     Route: 048
  2. LEVAQUIN [Suspect]
     Route: 048
  3. LEVAQUIN [Suspect]
     Indication: PROSTATITIS
     Route: 048
  4. DOXYCYCLINE HCL [Concomitant]
     Dosage: PRESCRIBED 30 TABLETS, BUT TOOK ONLY 2/3 OF PRESCRIPTION
  5. OXAPROZIN [Concomitant]
     Dosage: PRESCRIBED 30 TABLETS, BUT TOOK ONLY 12 TABLETS

REACTIONS (18)
  - ARTHRALGIA [None]
  - DIZZINESS [None]
  - DYSKINESIA [None]
  - GENITAL INFECTION FUNGAL [None]
  - HEAD DISCOMFORT [None]
  - HEART RATE IRREGULAR [None]
  - HEART VALVE INCOMPETENCE [None]
  - JOINT STIFFNESS [None]
  - MUSCLE DISORDER [None]
  - MUSCLE RUPTURE [None]
  - MUSCULOSKELETAL STIFFNESS [None]
  - OEDEMA PERIPHERAL [None]
  - PARAESTHESIA [None]
  - SCIATIC NERVE NEUROPATHY [None]
  - TENDON DISORDER [None]
  - TENDON PAIN [None]
  - TENDON RUPTURE [None]
  - VISUAL ACUITY REDUCED [None]
